FAERS Safety Report 11292032 (Version 3)
Quarter: 2015Q3

REPORT INFORMATION
  Report Type: Spontaneous
  Country: US (occurrence: US)
  Receive Date: 20150722
  Receipt Date: 20150828
  Transmission Date: 20151125
  Serious: Yes (Hospitalization)
  Sender: FDA-Public Use
  Company Number: US-VERTEX PHARMACEUTICALS-2015-002957

PATIENT
  Age: 42 Year
  Sex: Female

DRUGS (2)
  1. ORKAMBI [Suspect]
     Active Substance: IVACAFTOR\LUMACAFTOR
     Dosage: 1 DF, BID
     Route: 048
     Dates: start: 20150811, end: 20150815
  2. ORKAMBI [Suspect]
     Active Substance: IVACAFTOR\LUMACAFTOR
     Indication: CYSTIC FIBROSIS
     Dosage: UNK UNK, BID
     Route: 048
     Dates: start: 20150716, end: 20150720

REACTIONS (5)
  - Cyanosis [Unknown]
  - Hyperventilation [Unknown]
  - Respiration abnormal [Unknown]
  - Body temperature increased [Recovered/Resolved]
  - Painful respiration [Unknown]

NARRATIVE: CASE EVENT DATE: 201507
